FAERS Safety Report 5284009-4 (Version None)
Quarter: 2007Q2

REPORT INFORMATION
  Report Type: 
  Country: None (occurrence: None)
  Receive Date: 20070402
  Receipt Date: 20070321
  Transmission Date: 20071010
  Serious: Yes (Hospitalization)
  Sender: FDA-Public Use
  Company Number: KR-PFIZER INC-2007015605

PATIENT
  Sex: Male
  Weight: 44 kg

DRUGS (13)
  1. SU-011,248 [Suspect]
     Indication: METASTATIC RENAL CELL CARCINOMA
     Route: 048
     Dates: start: 20061222, end: 20070301
  2. PREDNISOLONE [Concomitant]
     Route: 048
  3. LAMIVUDINE [Concomitant]
     Route: 048
     Dates: start: 20061227
  4. MORPHINE [Concomitant]
     Route: 048
     Dates: start: 20070202
  5. LACTULOSE [Concomitant]
     Route: 048
     Dates: start: 20070216
  6. FOLATE [Concomitant]
     Route: 048
     Dates: start: 20061208
  7. FUROSEMIDE [Concomitant]
     Route: 048
     Dates: start: 20061229
  8. FEROBA [Concomitant]
     Route: 048
     Dates: start: 20070125
  9. ALLOPURINOL [Concomitant]
     Route: 048
     Dates: start: 20061228
  10. GLIQUIDONE [Concomitant]
     Route: 048
     Dates: start: 20061213
  11. SODIUM BICARBONATE [Concomitant]
     Route: 048
     Dates: start: 20070210
  12. CALCIUM POLYSTYRENE SULFONATE [Concomitant]
     Route: 048
     Dates: start: 20061230
  13. MEGACE [Concomitant]
     Route: 048
     Dates: start: 20070208

REACTIONS (2)
  - MENTAL STATUS CHANGES [None]
  - PNEUMONIA [None]
